FAERS Safety Report 5202580-5 (Version None)
Quarter: 2007Q1

REPORT INFORMATION
  Report Type: 
  Country: None (occurrence: None)
  Receive Date: 20070109
  Receipt Date: 20061228
  Transmission Date: 20070707
  Serious: Yes (Hospitalization)
  Sender: FDA-Public Use
  Company Number: ES-PFIZER INC-2006059681

PATIENT
  Sex: Female
  Weight: 53 kg

DRUGS (6)
  1. ZITHROMAX [Suspect]
     Indication: INFLUENZA
     Route: 048
     Dates: start: 20060201, end: 20060203
  2. ZITHROMAX [Suspect]
     Route: 065
  3. ZITHROMAX [Suspect]
     Dosage: DAILY DOSE:500MG
     Route: 042
     Dates: start: 20060413, end: 20060415
  4. TIRODRIL [Concomitant]
     Route: 065
  5. XALATAN [Concomitant]
     Route: 065
  6. TRAMAZOLINE [Concomitant]

REACTIONS (2)
  - PNEUMONIA [None]
  - TREMOR [None]
